FAERS Safety Report 7405027-3 (Version None)
Quarter: 2011Q2

REPORT INFORMATION
  Report Type: 
  Country: None (occurrence: None)
  Receive Date: 20110411
  Receipt Date: 20110328
  Transmission Date: 20111010
  Serious: Yes (Hospitalization, Other)
  Sender: FDA-Public Use
  Company Number: US-JNJFOC-20110107990

PATIENT
  Sex: Male
  Weight: 12.7 kg

DRUGS (8)
  1. HYDROCODONE [Suspect]
     Indication: ILL-DEFINED DISORDER
  2. INFLIXIMAB, RECOMBINANT [Suspect]
     Indication: CROHN'S DISEASE
     Route: 042
  3. PREDNISONE [Concomitant]
  4. ACETAMINOPHEN [Concomitant]
  5. PROBIOTICS [Concomitant]
  6. MORPHINE [Suspect]
     Indication: ILL-DEFINED DISORDER
  7. INFLIXIMAB, RECOMBINANT [Suspect]
     Route: 042
  8. FEOSOL [Concomitant]

REACTIONS (4)
  - HYPOKALAEMIA [None]
  - HYPONATRAEMIA [None]
  - POSTOPERATIVE ILEUS [None]
  - GASTROINTESTINAL STOMA COMPLICATION [None]
